FAERS Safety Report 15550972 (Version 1)
Quarter: 2018Q4

REPORT INFORMATION
  Report Type: Spontaneous
  Country: ZA (occurrence: ZA)
  Receive Date: 20181025
  Receipt Date: 20181025
  Transmission Date: 20190205
  Serious: Yes (Death, Other)
  Sender: FDA-Public Use
  Company Number: ZA-PFIZER INC-2018434350

PATIENT
  Age: 69 Year
  Sex: Female

DRUGS (5)
  1. REVATIO [Suspect]
     Active Substance: SILDENAFIL CITRATE
     Dosage: 20 MG, UNK
  2. SPIRACTIN (SPIRONOLACTONE) [Suspect]
     Active Substance: SPIRONOLACTONE
     Dosage: 25 MG, UNK
  3. CALCIFEROL [ERGOCALCIFEROL] [Suspect]
     Active Substance: ERGOCALCIFEROL
     Dosage: 50000 IU, UNK
  4. NEXMEZOL [Suspect]
     Active Substance: ESOMEPRAZOLE MAGNESIUM
     Dosage: 40 MG, UNK
  5. LASIX [Suspect]
     Active Substance: FUROSEMIDE
     Dosage: 40 MG, UNK

REACTIONS (1)
  - Death [Fatal]
